FAERS Safety Report 18651547 (Version 4)
Quarter: 2021Q1

REPORT INFORMATION
  Report Type: Report from Study
  Country: None (occurrence: DE)
  Receive Date: 20201223
  Receipt Date: 20210323
  Transmission Date: 20210419
  Serious: Yes (Hospitalization)
  Sender: FDA-Public Use
  Company Number: DE-ABBVIE-20K-062-3701822-00

PATIENT
  Sex: Female

DRUGS (6)
  1. LEVODOPA/BENSERAZIDE RETARD [Concomitant]
     Indication: PARKINSON^S DISEASE
     Route: 048
  2. DUODOPA [Suspect]
     Active Substance: CARBIDOPA\LEVODOPA
     Indication: PARKINSON^S DISEASE
     Dosage: MD 6 ML; CRD 1.9 ML/H; ED 1 ML
     Route: 050
     Dates: start: 20190903
  3. AMANTADIN [Concomitant]
     Active Substance: AMANTADINE
     Indication: PARKINSON^S DISEASE
     Route: 048
  4. CLONAZEPAM. [Concomitant]
     Active Substance: CLONAZEPAM
     Indication: PARKINSON^S DISEASE
     Route: 048
  5. DUODOPA [Suspect]
     Active Substance: CARBIDOPA\LEVODOPA
  6. QUETIAPINE. [Concomitant]
     Active Substance: QUETIAPINE
     Indication: PARKINSON^S DISEASE
     Route: 048

REACTIONS (4)
  - General physical health deterioration [Unknown]
  - Fall [Recovering/Resolving]
  - Gait disturbance [Recovering/Resolving]
  - Parkinson^s disease [Unknown]
